FAERS Safety Report 10096710 (Version 3)
Quarter: 2015Q1

REPORT INFORMATION
  Report Type: Spontaneous
  Country: US (occurrence: US)
  Receive Date: 20140422
  Receipt Date: 20150212
  Transmission Date: 20150720
  Serious: Yes (Hospitalization, Disabling, Other)
  Sender: FDA-Public Use
  Company Number: US-009507513-1103USA03208

PATIENT
  Sex: Female
  Weight: 81.18 kg

DRUGS (1)
  1. FOSAMAX [Suspect]
     Active Substance: ALENDRONATE SODIUM
     Indication: OSTEOPOROSIS
     Route: 048

REACTIONS (47)
  - Osteoarthritis [Unknown]
  - Joint dislocation [Not Recovered/Not Resolved]
  - Osteoarthritis [Unknown]
  - Vascular graft [Unknown]
  - Deafness [Unknown]
  - Hyperlipidaemia [Unknown]
  - Fibromyalgia [Unknown]
  - Protein total decreased [Unknown]
  - Rib fracture [Unknown]
  - Nausea [Unknown]
  - Femur fracture [Recovering/Resolving]
  - Deep vein thrombosis [Unknown]
  - Increased tendency to bruise [Unknown]
  - Muscular weakness [Unknown]
  - Foot fracture [Unknown]
  - Spinal fracture [Unknown]
  - Pruritus [Unknown]
  - Osteopenia [Unknown]
  - Deep vein thrombosis [Unknown]
  - Platelet count increased [Unknown]
  - Anaemia [Unknown]
  - Compression fracture [Unknown]
  - Impaired healing [Unknown]
  - Femur fracture [Recovered/Resolved]
  - Meniscus injury [Unknown]
  - Bunion operation [Unknown]
  - Blood albumin decreased [Unknown]
  - Vitamin D decreased [Unknown]
  - Joint contracture [Unknown]
  - Arthritis [Unknown]
  - Haemorrhage [Unknown]
  - Sensory loss [Unknown]
  - Hypoparathyroidism secondary [Unknown]
  - Enthesopathy [Unknown]
  - Intramedullary rod insertion [Unknown]
  - Thrombectomy [Unknown]
  - Asthma [Unknown]
  - Heart rate irregular [Unknown]
  - Gastrooesophageal reflux disease [Unknown]
  - Spinal operation [Unknown]
  - Adverse event [Not Recovered/Not Resolved]
  - Hypertension [Unknown]
  - Arthroscopy [Unknown]
  - Nerve block [Unknown]
  - Chest pain [Unknown]
  - Clavicle fracture [Unknown]
  - Restless legs syndrome [Unknown]

NARRATIVE: CASE EVENT DATE: 1996
